FAERS Safety Report 6413936-7 (Version None)
Quarter: 2009Q4

REPORT INFORMATION
  Report Type: 
  Country: None (occurrence: None)
  Receive Date: 20091026
  Receipt Date: 20091015
  Transmission Date: 20100525
  Serious: Yes (Hospitalization)
  Sender: FDA-Public Use
  Company Number: US-ELI_LILLY_AND_COMPANY-US200910003677

PATIENT
  Sex: Female

DRUGS (10)
  1. FORTEO [Suspect]
     Indication: OSTEOPOROSIS
     Dosage: UNK, UNK
     Dates: start: 20090701
  2. NORVASC [Concomitant]
  3. DIGOXIN [Concomitant]
  4. AVAPRO [Concomitant]
  5. COUMADIN [Concomitant]
  6. SOTALOL [Concomitant]
  7. NEURONTIN [Concomitant]
  8. TYLOX [Concomitant]
  9. TENORMIN [Concomitant]
  10. FENTANYL-100 [Concomitant]

REACTIONS (3)
  - BLOOD DISORDER [None]
  - DIZZINESS [None]
  - FATIGUE [None]
